FAERS Safety Report 6221003-0 (Version None)
Quarter: 2009Q2

REPORT INFORMATION
  Report Type: 
  Country: None (occurrence: None)
  Receive Date: 20090608
  Receipt Date: 20090522
  Transmission Date: 20091009
  Serious: Yes (Hospitalization)
  Sender: FDA-Public Use
  Company Number: 8045442

PATIENT
  Age: 68 Year
  Sex: Female
  Weight: 80 kg

DRUGS (8)
  1. KEPPRA [Suspect]
     Indication: PARTIAL SEIZURES
     Dosage: 3500 MG/D PO
     Route: 048
  2. VIMPAT [Suspect]
     Indication: PARTIAL SEIZURES
     Dosage: 200 MG 2/D PO
     Route: 048
     Dates: start: 20090121, end: 20090507
  3. HYDROCHLOROTHIAZIDE [Concomitant]
  4. VIGANTOLETTEN [Concomitant]
  5. CALCIUM EFFERVESCENT [Concomitant]
  6. FOSAMAX [Concomitant]
  7. ESTRIOL [Concomitant]
  8. COTRIM [Concomitant]

REACTIONS (4)
  - ARRHYTHMIA [None]
  - ATRIAL FIBRILLATION [None]
  - DILATATION ATRIAL [None]
  - DRUG INEFFECTIVE [None]
